FAERS Safety Report 7988959-7 (Version None)
Quarter: 2011Q4

REPORT INFORMATION
  Report Type: 
  Country: None (occurrence: None)
  Receive Date: 20111219
  Receipt Date: 20111207
  Transmission Date: 20120403
  Serious: Yes (Hospitalization, Other)
  Sender: FDA-Public Use
  Company Number: US-BAYER-2011-049270

PATIENT
  Age: 32 Year
  Sex: Female
  Weight: 94.785 kg

DRUGS (3)
  1. YASMIN [Suspect]
     Indication: CONTRACEPTION
     Dosage: UNK
     Dates: start: 20020901, end: 20040801
  2. YASMIN [Suspect]
     Indication: PREMENSTRUAL SYNDROME
     Dosage: UNK
     Dates: start: 20060101, end: 20061001
  3. IBUPROFEN [Concomitant]
     Indication: PAIN
     Dosage: UNK
     Route: 048
     Dates: start: 20050101

REACTIONS (7)
  - INJURY [None]
  - ABDOMINAL PAIN [None]
  - ABORTION SPONTANEOUS [None]
  - GALLBLADDER DISORDER [None]
  - GALLBLADDER INJURY [None]
  - PAIN [None]
  - CHOLELITHIASIS [None]
